FAERS Safety Report 11804982 (Version 2)
Quarter: 2016Q4

REPORT INFORMATION
  Report Type: Spontaneous
  Country: US (occurrence: US)
  Receive Date: 20151205
  Receipt Date: 20161222
  Transmission Date: 20170206
  Serious: No
  Sender: FDA-Public Use
  Company Number: US-BAUSCH-BL-2015-000021

PATIENT
  Sex: Male

DRUGS (1)
  1. XENAZINE [Suspect]
     Active Substance: TETRABENAZINE
     Indication: HUNTINGTON^S DISEASE
     Route: 048
     Dates: start: 201106

REACTIONS (5)
  - Muscle twitching [Unknown]
  - Thinking abnormal [Unknown]
  - Product quality issue [Unknown]
  - Drug dose omission [Unknown]
  - Chorea [Unknown]

NARRATIVE: CASE EVENT DATE: 2014
